FAERS Safety Report 4601965-5 (Version None)
Quarter: 2005Q1

REPORT INFORMATION
  Report Type: 
  Country: None (occurrence: None)
  Receive Date: 20050131
  Receipt Date: 20041122
  Transmission Date: 20050727
  Serious: No
  Sender: FDA-Public Use
  Company Number: 200418991US

PATIENT
  Age: 77 Year
  Sex: Female

DRUGS (3)
  1. KETEK [Suspect]
     Indication: BRONCHITIS ACUTE
     Dosage: 400 2 TABLETS MG QD PO
     Route: 048
     Dates: start: 20040901, end: 20040901
  2. TAMOXIFEN CITRATE [Concomitant]
  3. DIOVAN [Concomitant]

REACTIONS (1)
  - DIPLOPIA [None]
